FAERS Safety Report 13903165 (Version 2)
Quarter: 2017Q3

REPORT INFORMATION
  Report Type: Spontaneous
  Country: FR (occurrence: FR)
  Receive Date: 20170824
  Receipt Date: 20170922
  Transmission Date: 20171127
  Serious: Yes (Hospitalization)
  Sender: FDA-Public Use
  Company Number: PHHY2017FR122536

PATIENT
  Age: 62 Year
  Sex: Male

DRUGS (24)
  1. SKENAN [Suspect]
     Active Substance: MORPHINE SULFATE
     Indication: SCIATICA
     Dosage: 10 MG, BID (MIDDAY AND EVENING)
     Route: 048
     Dates: start: 20170615, end: 20170616
  2. ACTISKENAN [Suspect]
     Active Substance: MORPHINE SULFATE
     Dosage: 10 MG, 1 DF TO 4 DF DAILY
     Route: 048
     Dates: start: 20170616, end: 20170626
  3. VOLTARENE [Suspect]
     Active Substance: DICLOFENAC SODIUM
     Indication: SCIATICA
     Dosage: UNK
     Route: 048
     Dates: start: 20170607
  4. PREDNISONE. [Suspect]
     Active Substance: PREDNISONE
     Dosage: 80 MG, QD (MORNING)
     Route: 048
     Dates: start: 20170619, end: 20170620
  5. PREDNISONE. [Suspect]
     Active Substance: PREDNISONE
     Dosage: 20 MG, QD (MORNING)
     Route: 048
     Dates: start: 20170624, end: 20170626
  6. ALPRAZOLAM. [Suspect]
     Active Substance: ALPRAZOLAM
     Indication: PRODUCT USED FOR UNKNOWN INDICATION
     Dosage: 0.125 MG, QD (AT BED TIME)
     Route: 048
     Dates: start: 201701
  7. LYRICA [Suspect]
     Active Substance: PREGABALIN
     Indication: SCIATICA
     Dosage: 50 MG, UNK
     Route: 048
     Dates: start: 20170612
  8. HEXOMEDINE [Suspect]
     Active Substance: HEXAMIDINE DIISETHIONATE
     Indication: PRODUCT USED FOR UNKNOWN INDICATION
     Dosage: UNK
     Route: 062
     Dates: start: 20170612
  9. ACTISKENAN [Suspect]
     Active Substance: MORPHINE SULFATE
     Indication: SCIATICA
     Dosage: 5 MG, Q4H PRN
     Route: 048
     Dates: start: 20170615, end: 20170616
  10. PREDNISONE. [Suspect]
     Active Substance: PREDNISONE
     Dosage: 60 MG, QD (MORNING)
     Route: 048
     Dates: start: 20170621, end: 20170623
  11. PREDNISONE. [Suspect]
     Active Substance: PREDNISONE
     Dosage: 40 MG, QD
     Route: 048
     Dates: start: 20170626, end: 20170628
  12. PARACETAMOL [Suspect]
     Active Substance: ACETAMINOPHEN
     Indication: SCIATICA
     Dosage: 1 G, TID PRN
     Route: 048
     Dates: start: 20170619
  13. ACTISKENAN [Suspect]
     Active Substance: MORPHINE SULFATE
     Dosage: 5 MG, Q4H PRN
     Route: 048
     Dates: start: 20170703
  14. PREDNISONE. [Suspect]
     Active Substance: PREDNISONE
     Indication: SCIATICA
     Dosage: 40 MG, QD
     Route: 048
     Dates: start: 20170616, end: 20170619
  15. LANSOPRAZOLE. [Suspect]
     Active Substance: LANSOPRAZOLE
     Indication: PROPHYLAXIS AGAINST GASTROINTESTINAL ULCER
     Dosage: 15 MG, QD
     Route: 048
     Dates: start: 20170607, end: 20170614
  16. COLTRAMYL [Suspect]
     Active Substance: THIOCOLCHICOSIDE
     Indication: SCIATICA
     Dosage: 2 DF, BID
     Route: 048
     Dates: start: 20170613, end: 20170618
  17. ACUPAN [Suspect]
     Active Substance: NEFOPAM HYDROCHLORIDE
     Indication: SCIATICA
     Dosage: 20 MG, Q6H
     Route: 048
     Dates: start: 20170614, end: 20170622
  18. SKENAN [Suspect]
     Active Substance: MORPHINE SULFATE
     Dosage: 30 MG, BID (MIDDAY AND EVENING)
     Route: 048
     Dates: start: 20170616, end: 20170701
  19. LANSOPRAZOLE. [Suspect]
     Active Substance: LANSOPRAZOLE
     Dosage: 15 MG, QD
     Route: 048
     Dates: start: 20170616
  20. SEROPLEX [Suspect]
     Active Substance: ESCITALOPRAM OXALATE
     Indication: DEPRESSION
     Dosage: UNK
     Route: 048
     Dates: start: 201601
  21. ACTISKENAN [Suspect]
     Active Substance: MORPHINE SULFATE
     Dosage: 10 MG, Q6H PRN
     Route: 048
     Dates: start: 20170626
  22. PREDNISONE. [Suspect]
     Active Substance: PREDNISONE
     Dosage: 20 MG, QD
     Route: 048
     Dates: start: 20170629, end: 20170630
  23. ESCITALOPRAM [Suspect]
     Active Substance: ESCITALOPRAM OXALATE
     Indication: DEPRESSION
     Dosage: 10 MG, QD (IN THE MORNING)
     Route: 048
     Dates: start: 20170620
  24. TRAMADOL. [Suspect]
     Active Substance: TRAMADOL
     Indication: SCIATICA
     Dosage: 50 MG, TID
     Route: 048
     Dates: start: 20170607

REACTIONS (1)
  - Hepatitis acute [Recovering/Resolving]

NARRATIVE: CASE EVENT DATE: 20170701
